FAERS Safety Report 25961888 (Version 1)
Quarter: 2025Q4

REPORT INFORMATION
  Report Type: Spontaneous
  Country: US (occurrence: US)
  Receive Date: 20251027
  Receipt Date: 20251027
  Transmission Date: 20260118
  Serious: Yes (Hospitalization)
  Sender: MYLAN
  Company Number: US-MYLANLABS-2025M1089014

PATIENT
  Age: 33 Year
  Sex: Female

DRUGS (9)
  1. DOCETAXEL [Suspect]
     Active Substance: DOCETAXEL
     Indication: Invasive ductal breast carcinoma
     Dosage: 135 MILLIGRAM,ONCE
  2. DOCETAXEL [Suspect]
     Active Substance: DOCETAXEL
     Dosage: 135 MILLIGRAM, Q21D, THERAPY COMPLETED
     Dates: start: 20220302, end: 20220526
  3. CARBOPLATIN [Suspect]
     Active Substance: CARBOPLATIN
     Indication: Invasive ductal breast carcinoma
     Dosage: 500 MILLIGRAM, ONCE
  4. CARBOPLATIN [Suspect]
     Active Substance: CARBOPLATIN
     Dosage: 500 MILLIGRAM, Q21D, THERAPY COMPLETED
     Dates: start: 20220302, end: 20220526
  5. PERTUZUMAB [Suspect]
     Active Substance: PERTUZUMAB
     Indication: Invasive ductal breast carcinoma
     Dosage: 840 MILLIGRAM, ONCE
  6. PERTUZUMAB [Suspect]
     Active Substance: PERTUZUMAB
     Dosage: 420 MILLIGRAM, Q21D,  THERAPY COMPLETED
     Dates: start: 20220302, end: 20220526
  7. TRASTUZUMAB [Suspect]
     Active Substance: TRASTUZUMAB
     Indication: Invasive ductal breast carcinoma
     Dosage: 550 MILLIGRAM, ONCE
  8. TRASTUZUMAB [Suspect]
     Active Substance: TRASTUZUMAB
     Dosage: 410 MILLIGRAM, Q21D
     Dates: start: 20220302, end: 20220526
  9. TRASTUZUMAB [Suspect]
     Active Substance: TRASTUZUMAB
     Dosage: 420 MILLIGRAM, Q21D, THERAPY COMPLETED
     Dates: start: 20220718, end: 20230213

REACTIONS (1)
  - Arteriosclerosis [Recovering/Resolving]

NARRATIVE: CASE EVENT DATE: 20250101
